FAERS Safety Report 5106745-2 (Version None)
Quarter: 2006Q3

REPORT INFORMATION
  Report Type: 
  Country: None (occurrence: None)
  Receive Date: 20060918
  Receipt Date: 20020808
  Transmission Date: 20061208
  Serious: Yes (Other)
  Sender: FDA-Public Use
  Company Number: DE-AMGEN-UK017204

PATIENT
  Sex: Female

DRUGS (17)
  1. ARANESP [Suspect]
     Indication: DIALYSIS
     Route: 058
     Dates: start: 20020128, end: 20020528
  2. ERYPO [Suspect]
     Route: 058
     Dates: start: 20010608, end: 20010622
  3. NEORECORMON [Suspect]
     Route: 058
     Dates: start: 20010914, end: 20011122
  4. NEORECORMON [Suspect]
     Route: 058
     Dates: start: 20011123, end: 20020127
  5. NEORECORMON [Suspect]
     Route: 058
     Dates: start: 20020604, end: 20020629
  6. BELOC ZOK [Concomitant]
     Route: 065
  7. CATAPRESAN [Concomitant]
     Route: 065
  8. NORVASC [Concomitant]
     Route: 065
  9. LECITHIN [Concomitant]
     Route: 065
  10. FERROUS SULFATE TAB [Concomitant]
     Route: 065
  11. ONE-ALPHA [Concomitant]
     Route: 065
  12. LASIX [Concomitant]
     Route: 065
  13. RENAGEL [Concomitant]
     Route: 065
  14. DILATREND [Concomitant]
     Route: 065
  15. ALUDROX [Concomitant]
     Route: 065
  16. NEXIUM [Concomitant]
     Route: 065
     Dates: start: 20011201
  17. XANEF [Concomitant]
     Route: 065

REACTIONS (10)
  - ANTI-ERYTHROPOIETIN ANTIBODY POSITIVE [None]
  - APLASIA PURE RED CELL [None]
  - BLOOD CREATININE INCREASED [None]
  - BLOOD PHOSPHORUS INCREASED [None]
  - HAEMORRHAGE [None]
  - HYPERTENSION [None]
  - HYPOCHROMIC ANAEMIA [None]
  - REFUSAL OF EXAMINATION [None]
  - RETINOPATHY HYPERTENSIVE [None]
  - VISUAL DISTURBANCE [None]
